FAERS Safety Report 7660581-1 (Version None)
Quarter: 2011Q3

REPORT INFORMATION
  Report Type: 
  Country: None (occurrence: None)
  Receive Date: 20110805
  Receipt Date: 20101027
  Transmission Date: 20111222
  Serious: No
  Sender: FDA-Public Use
  Company Number: US-ABBOTT-10P-163-0682531-00

PATIENT
  Sex: Male
  Weight: 88.076 kg

DRUGS (3)
  1. HYZAAR [Concomitant]
     Indication: HYPERTENSION
     Dosage: 100/25MG
  2. NIASPAN [Suspect]
     Indication: HIGH DENSITY LIPOPROTEIN DECREASED
     Route: 048
  3. NIASPAN [Suspect]
     Indication: BLOOD TRIGLYCERIDES INCREASED
     Dosage: STOPPED/STARTED MEDICATION MANY TIMES
     Route: 048

REACTIONS (2)
  - FLUSHING [None]
  - ACNE [None]
